FAERS Safety Report 6837083-5 (Version None)
Quarter: 2010Q3

REPORT INFORMATION
  Report Type: 
  Country: None (occurrence: None)
  Receive Date: 20100713
  Receipt Date: 20070430
  Transmission Date: 20110219
  Serious: No
  Sender: FDA-Public Use
  Company Number: US-PFIZER INC-2007036627

PATIENT
  Sex: Female
  Weight: 69.545 kg

DRUGS (7)
  1. CHANTIX [Suspect]
     Indication: SMOKING CESSATION THERAPY
     Dates: start: 20070415, end: 20070427
  2. ZYRTEC [Concomitant]
  3. LIPITOR [Concomitant]
  4. NEXIUM [Concomitant]
  5. NADOLOL [Concomitant]
  6. AVALIDE [Concomitant]
  7. PENTOXIFYLLINE [Concomitant]

REACTIONS (8)
  - ABDOMINAL DISCOMFORT [None]
  - DYSKINESIA [None]
  - FLATULENCE [None]
  - INCREASED APPETITE [None]
  - NAUSEA [None]
  - NERVOUSNESS [None]
  - VOMITING [None]
  - WEIGHT INCREASED [None]
